FAERS Safety Report 6411205-2 (Version None)
Quarter: 2009Q4

REPORT INFORMATION
  Report Type: 
  Country: None (occurrence: None)
  Receive Date: 20091019
  Receipt Date: 20091005
  Transmission Date: 20100525
  Serious: Yes (Death, Hospitalization, Other)
  Sender: FDA-Public Use
  Company Number: 2007-03770

PATIENT
  Age: 66 Year
  Sex: Female
  Weight: 46 kg

DRUGS (20)
  1. VELCADE [Suspect]
     Indication: MULTIPLE MYELOMA
     Dosage: 1.30 MG/M2,INTRAVENOUS; 1.7 MG, INTRAVENOUS
     Route: 042
     Dates: start: 20070918, end: 20070922
  2. VELCADE [Suspect]
     Indication: MULTIPLE MYELOMA
     Dosage: 1.30 MG/M2,INTRAVENOUS; 1.7 MG, INTRAVENOUS
     Route: 042
     Dates: start: 20071016, end: 20071026
  3. SOLU-MEDROL [Suspect]
     Indication: BLOOD LACTATE DEHYDROGENASE INCREASED
     Dosage: 500.00 MG,INTRAVENOUS
     Route: 042
     Dates: start: 20070923, end: 20090928
  4. PREDNISOLONE [Suspect]
     Indication: BLOOD LACTATE DEHYDROGENASE INCREASED
     Dosage: 30.00 MG, INTRAVENOUS
     Route: 042
     Dates: start: 20070929
  5. PREDNISOLONE [Suspect]
     Indication: BLOOD LACTATE DEHYDROGENASE INCREASED
     Dosage: 20.00 MG, ORAL
     Route: 048
     Dates: start: 20071002
  6. LOPEMIN(LOPERAMIDE HYDROCHLORIDE) CAPSULE [Suspect]
     Indication: DRUG USE FOR UNKNOWN INDICATION
     Dosage: ORAL
     Route: 048
  7. VEEN D (GLUCOSE, POTASSIUM CHLORIDE, CALCIUM CHLORIDE DIHYDRATE, SODIU [Concomitant]
  8. VITAMEDIN INTRAVENOUS (PYRIDOXINE HYDROCHLORIDE, THIAMINE DISULFIDE, C [Concomitant]
  9. MAGNESIUM OXIDE (MAGNESIUM OXIDE) [Concomitant]
  10. PRIMPERAN TAB [Concomitant]
  11. PURSENNID (SENNA LEAF) [Concomitant]
  12. PYRINAZIN (PARACETAMOL) [Concomitant]
  13. SULFAMETHOXAZOLE AND TRIMETHOPRIM [Concomitant]
  14. DIFLUCAN [Concomitant]
  15. ALLOPURINOL [Concomitant]
  16. HACHIAZULE (SODIUM BICARBONATE, SODIUM GUALENATE) [Concomitant]
  17. PRIMPERAN TAB [Concomitant]
  18. POSTERISAN (PHENOL, ESCHERICHIA COLI, LYOPHILIZED) [Concomitant]
  19. KYTRIL [Concomitant]
  20. SODIUM BICARBONATE [Concomitant]

REACTIONS (24)
  - BLOOD LACTATE DEHYDROGENASE INCREASED [None]
  - CARDIAC FAILURE CONGESTIVE [None]
  - CARDIOMEGALY [None]
  - CONSTIPATION [None]
  - DIARRHOEA [None]
  - DISEASE PROGRESSION [None]
  - DRY SKIN [None]
  - EPISTAXIS [None]
  - GASTROINTESTINAL HAEMORRHAGE [None]
  - HAEMORRHOIDAL HAEMORRHAGE [None]
  - HEPATIC FUNCTION ABNORMAL [None]
  - HYPOAESTHESIA [None]
  - HYPOALBUMINAEMIA [None]
  - HYPOKALAEMIA [None]
  - LUNG DISORDER [None]
  - MALAISE [None]
  - NAUSEA [None]
  - OEDEMA PERIPHERAL [None]
  - PLATELET COUNT DECREASED [None]
  - PLEURAL EFFUSION [None]
  - PYREXIA [None]
  - RASH [None]
  - RENAL IMPAIRMENT [None]
  - TUMOUR LYSIS SYNDROME [None]
